FAERS Safety Report 20036048 (Version 9)
Quarter: 2023Q1

REPORT INFORMATION
  Report Type: Spontaneous
  Country: US (occurrence: US)
  Receive Date: 20211105
  Receipt Date: 20230310
  Transmission Date: 20230417
  Serious: No
  Sender: FDA-Public Use
  Company Number: US-GLAXOSMITHKLINE-US2021AMR223450

PATIENT
  Age: 56 Year
  Sex: Female

DRUGS (5)
  1. ZEJULA [Suspect]
     Active Substance: NIRAPARIB
     Indication: Ovarian cancer
     Dosage: 200 MG, QD
     Dates: start: 20210923, end: 20211213
  2. ZEJULA [Suspect]
     Active Substance: NIRAPARIB
     Dosage: 200MG EVERY OTHER DAY, ALTERNATING WITH 100MG EVERY OTHER DAY
     Dates: start: 20220112
  3. ZEJULA [Suspect]
     Active Substance: NIRAPARIB
     Dosage: 200 MG, QD
  4. ZEJULA [Suspect]
     Active Substance: NIRAPARIB
     Dosage: 200 MG ONE NIGHT THEN 100 MG THE NEXT NIGHT
  5. ZEJULA [Suspect]
     Active Substance: NIRAPARIB
     Dosage: UNK, Z (100MG ALTERNATI/NG WITH 200MG EVERY OTHER DAY)

REACTIONS (14)
  - Headache [Recovering/Resolving]
  - Nausea [Not Recovered/Not Resolved]
  - Tinnitus [Not Recovered/Not Resolved]
  - Myalgia [Recovering/Resolving]
  - Fatigue [Recovering/Resolving]
  - Haemoglobin decreased [Recovered/Resolved]
  - Palpitations [Recovered/Resolved]
  - Back pain [Not Recovered/Not Resolved]
  - Photosensitivity reaction [Not Recovered/Not Resolved]
  - Burning sensation [Not Recovered/Not Resolved]
  - Pruritus [Not Recovered/Not Resolved]
  - Sciatica [Unknown]
  - Off label use [Not Recovered/Not Resolved]
  - Product dose omission in error [Unknown]

NARRATIVE: CASE EVENT DATE: 20220112
